FAERS Safety Report 7136012-7 (Version None)
Quarter: 2010Q4

REPORT INFORMATION
  Report Type: 
  Country: None (occurrence: None)
  Receive Date: 20101204
  Receipt Date: 20101123
  Transmission Date: 20110411
  Serious: Yes (Life-Threatening, Other)
  Sender: FDA-Public Use
  Company Number: CY-BAYER-201047920GPV

PATIENT

DRUGS (1)
  1. ULTRAVIST 370 [Suspect]
     Dosage: 70 ML, ONCE
     Route: 042
     Dates: start: 20101122, end: 20101122

REACTIONS (1)
  - ANAPHYLACTIC SHOCK [None]
